FAERS Safety Report 7511447-9 (Version None)
Quarter: 2011Q2

REPORT INFORMATION
  Report Type: 
  Country: None (occurrence: None)
  Receive Date: 20110531
  Receipt Date: 20110517
  Transmission Date: 20111010
  Serious: Yes (Other)
  Sender: FDA-Public Use
  Company Number: DE-JNJFOC-20110511709

PATIENT
  Age: 10 Year
  Sex: Male

DRUGS (2)
  1. ITRACONAZOLE [Suspect]
     Indication: CHRONIC GRANULOMATOUS DISEASE
     Route: 065
  2. COTRIM [Suspect]
     Indication: CHRONIC GRANULOMATOUS DISEASE
     Route: 065

REACTIONS (6)
  - BRONCHOPULMONARY ASPERGILLOSIS [None]
  - LYMPHADENITIS [None]
  - INFLAMMATORY BOWEL DISEASE [None]
  - OSTEOMYELITIS FUNGAL [None]
  - DRUG INEFFECTIVE [None]
  - PNEUMONIA BACTERIAL [None]
